FAERS Safety Report 8828075 (Version 1)
Quarter: 2012Q4

REPORT INFORMATION
  Report Type: 
  Country: US (occurrence: US)
  Receive Date: 20121005
  Receipt Date: 20121005
  Transmission Date: 20130627
  Serious: Yes (Hospitalization)
  Sender: FDA-Public Use
  Company Number: US-GENZYME-FABR-1002767

PATIENT
  Sex: Male

DRUGS (2)
  1. FABRAZYME [Suspect]
     Indication: FABRY^S DISEASE
     Dosage: UNK
  2. UNSPECIFIED INGREDIENT [Suspect]
     Indication: PAIN

REACTIONS (2)
  - Adverse reaction [Recovered/Resolved]
  - Incorrect dose administered [None]
